FAERS Safety Report 6215368-3 (Version None)
Quarter: 2009Q2

REPORT INFORMATION
  Report Type: 
  Country: None (occurrence: None)
  Receive Date: 20090604
  Receipt Date: 20090505
  Transmission Date: 20091009
  Serious: Yes (Other)
  Sender: FDA-Public Use
  Company Number: PHHY2009CN17161

PATIENT
  Age: 58 Year
  Sex: Female

DRUGS (1)
  1. MIACALCIN [Suspect]
     Indication: PAIN IN EXTREMITY
     Dosage: 50 IU, UNK
     Route: 030

REACTIONS (7)
  - BURNING SENSATION [None]
  - DYSPHORIA [None]
  - FLUSHING [None]
  - HEART RATE INCREASED [None]
  - PALPITATIONS [None]
  - PYREXIA [None]
  - RASH ERYTHEMATOUS [None]
